FAERS Safety Report 8920158 (Version 1)
Quarter: 2012Q4

REPORT INFORMATION
  Report Type: 
  Country: US (occurrence: US)
  Receive Date: 20121122
  Receipt Date: 20121122
  Transmission Date: 20130627
  Serious: Yes (Hospitalization)
  Sender: FDA-Public Use
  Company Number: US-ABBOTT-12P-163-1009346-00

PATIENT
  Age: 13 Year
  Sex: Female

DRUGS (6)
  1. DEPAKOTE [Suspect]
     Indication: BIPOLAR DISORDER
     Dates: end: 2005
  2. DEPAKOTE [Suspect]
     Indication: EPILEPSY
  3. GEODON [Suspect]
     Indication: BIPOLAR DISORDER
     Dates: end: 2005
  4. PAXIL [Concomitant]
     Indication: PRODUCT USED FOR UNKNOWN INDICATION
  5. ZOLOFT [Concomitant]
     Indication: PRODUCT USED FOR UNKNOWN INDICATION
  6. UNKNOWN MEDICATION [Concomitant]
     Indication: PRODUCT USED FOR UNKNOWN INDICATION

REACTIONS (5)
  - Altered state of consciousness [Unknown]
  - Overdose [Unknown]
  - Somnolence [Unknown]
  - Fall [Unknown]
  - Hypersomnia [Unknown]
